FAERS Safety Report 4336937-1 (Version None)
Quarter: 2004Q2

REPORT INFORMATION
  Report Type: 
  Country: None (occurrence: None)
  Receive Date: 20040408
  Receipt Date: 20040324
  Transmission Date: 20050107
  Serious: Yes (Hospitalization)
  Sender: FDA-Public Use
  Company Number: MPS1-10190

PATIENT
  Age: 18 Month
  Sex: Male
  Weight: 11 kg

DRUGS (2)
  1. ALDURAZYME [Suspect]
     Indication: MUCOPOLYSACCHARIDOSIS IH
     Dosage: 0.79 MG/KG QWK IV
     Route: 042
     Dates: start: 20031001, end: 20040212
  2. CYCLOSPORINE [Concomitant]

REACTIONS (5)
  - CLONUS [None]
  - GRAFT VERSUS HOST DISEASE [None]
  - HYPERREFLEXIA [None]
  - HYPERTENSION [None]
  - IRRITABILITY [None]
